FAERS Safety Report 9717038 (Version 1)
Quarter: 2013Q4

REPORT INFORMATION
  Report Type: Spontaneous
  Country: US (occurrence: US)
  Receive Date: 20131127
  Receipt Date: 20131127
  Transmission Date: 20140711
  Serious: No
  Sender: FDA-Public Use
  Company Number: US-GILEAD-2009-0020621

PATIENT
  Sex: Female
  Weight: 63.5 kg

DRUGS (11)
  1. LETAIRIS [Suspect]
     Indication: PULMONARY ARTERIAL HYPERTENSION
     Route: 048
     Dates: start: 20090219
  2. SYMBICORT [Suspect]
  3. COUMADIN [Concomitant]
  4. DIGOXIN [Concomitant]
  5. LASIX [Concomitant]
  6. MISOPROSTOL [Concomitant]
  7. COSOPT EYE DROPS [Concomitant]
  8. NEURONTIN [Concomitant]
  9. FORTICAL [Concomitant]
  10. RELAFEN [Concomitant]
  11. TYLENOL [Concomitant]

REACTIONS (1)
  - Eye irritation [Unknown]
